FAERS Safety Report 11990011 (Version 3)
Quarter: 2016Q2

REPORT INFORMATION
  Report Type: Spontaneous
  Country: US (occurrence: US)
  Receive Date: 20160202
  Receipt Date: 20160629
  Transmission Date: 20160815
  Serious: Yes (Death, Life-Threatening, Other)
  Sender: FDA-Public Use
  Company Number: US-009507513-1602USA001354

PATIENT
  Sex: Female
  Weight: 68.27 kg

DRUGS (1)
  1. JANUVIA [Suspect]
     Active Substance: SITAGLIPTIN PHOSPHATE
     Indication: PRODUCT USED FOR UNKNOWN INDICATION
     Dosage: 100 MG, QD
     Route: 048
     Dates: start: 2007, end: 20100518

REACTIONS (37)
  - Pancreatic carcinoma [Fatal]
  - Lymphadenectomy [Unknown]
  - Dizziness [Unknown]
  - Abdominal pain upper [Unknown]
  - Gastrooesophageal reflux disease [Unknown]
  - Chest pain [Recovered/Resolved]
  - Hypertension [Unknown]
  - Hyperglycaemia [Unknown]
  - Cholelithiasis [Unknown]
  - Cholecystitis [Unknown]
  - Vomiting [Unknown]
  - Abdominal pain [Unknown]
  - Vision blurred [Unknown]
  - Heart rate increased [Unknown]
  - Cardiac flutter [Unknown]
  - Acute kidney injury [Unknown]
  - Hysterotomy [Unknown]
  - Carbon dioxide decreased [Unknown]
  - Hiatus hernia [Unknown]
  - Anaemia of chronic disease [Unknown]
  - Coronary artery disease [Unknown]
  - Urinary tract infection [Unknown]
  - Cataract [Unknown]
  - Pancreatitis [Unknown]
  - Drug hypersensitivity [Unknown]
  - Splenectomy [Unknown]
  - Troponin increased [Unknown]
  - Arrhythmia [Unknown]
  - Malnutrition [Unknown]
  - Hyperlipidaemia [Unknown]
  - Hypoalbuminaemia [Unknown]
  - Pulmonary mass [Recovering/Resolving]
  - Nausea [Unknown]
  - Hyperchloraemia [Unknown]
  - Constipation [Unknown]
  - Chronic kidney disease [Unknown]
  - Hypocalcaemia [Unknown]

NARRATIVE: CASE EVENT DATE: 2010
